FAERS Safety Report 6203412-9 (Version None)
Quarter: 2009Q2

REPORT INFORMATION
  Report Type: 
  Country: None (occurrence: None)
  Receive Date: 20090527
  Receipt Date: 20090126
  Transmission Date: 20091009
  Serious: No
  Sender: FDA-Public Use
  Company Number: US-KINGPHARMUSA00001-K200900092

PATIENT
  Sex: Male

DRUGS (1)
  1. KEMADRIN [Suspect]
     Indication: PARKINSON'S DISEASE
     Dosage: UNK

REACTIONS (1)
  - DYSTONIA [None]
